FAERS Safety Report 6152591-0 (Version None)
Quarter: 2009Q2

REPORT INFORMATION
  Report Type: 
  Country: None (occurrence: None)
  Receive Date: 20090413
  Receipt Date: 20090331
  Transmission Date: 20091009
  Serious: No
  Sender: FDA-Public Use
  Company Number: US-ELI_LILLY_AND_COMPANY-US200903003838

PATIENT
  Age: 40 Year
  Sex: Female

DRUGS (7)
  1. CYMBALTA [Suspect]
     Indication: DEPRESSION
     Dosage: 30 MG, UNK
     Dates: start: 20070131, end: 20070206
  2. CYMBALTA [Suspect]
     Dosage: 60 MG, UNK
     Dates: start: 20070207, end: 20070201
  3. CYMBALTA [Suspect]
     Dosage: 90 MG, UNK
     Dates: start: 20070201
  4. PROZAC [Suspect]
  5. LOESTRIN 1.5/30 [Concomitant]
  6. LAMICTAL [Concomitant]
     Indication: AFFECTIVE DISORDER
  7. ABILIFY [Concomitant]
     Indication: DEPRESSION
     Dosage: 15 MG, UNK

REACTIONS (5)
  - BLOOD GLUCOSE INCREASED [None]
  - HAEMATOCRIT INCREASED [None]
  - HAEMOGLOBIN INCREASED [None]
  - HEPATIC STEATOSIS [None]
  - TREMOR [None]
